FAERS Safety Report 10293588 (Version 1)
Quarter: 2014Q3

REPORT INFORMATION
  Report Type: Spontaneous
  Country: SE (occurrence: SE)
  Receive Date: 20140710
  Receipt Date: 20140710
  Transmission Date: 20150326
  Serious: Yes (Hospitalization)
  Sender: FDA-Public Use
  Company Number: SE-PFIZER INC-2014188194

PATIENT
  Age: 85 Year
  Sex: Male

DRUGS (16)
  1. OMEPRAZOLE. [Concomitant]
     Active Substance: OMEPRAZOLE
  2. PREDNISOLONE. [Concomitant]
     Active Substance: PREDNISOLONE
  3. ALENAT [Concomitant]
     Active Substance: ALENDRONATE SODIUM
     Dosage: 70 MG, WEEKLY
  4. BRILIQUE [Suspect]
     Active Substance: TICAGRELOR
     Dosage: 90 MG, 2X/DAY
     Route: 048
     Dates: start: 20140527, end: 20140622
  5. WARAN [Concomitant]
     Active Substance: WARFARIN SODIUM
     Dosage: 2.5 MG, UNK
  6. TAZOCIN [Concomitant]
     Active Substance: PIPERACILLIN SODIUM\TAZOBACTAM SODIUM
     Indication: INFECTION
  7. FINASTERIDE. [Concomitant]
     Active Substance: FINASTERIDE
  8. LIPITOR [Suspect]
     Active Substance: ATORVASTATIN CALCIUM
     Dosage: 80 MG, 1X/DAY
     Route: 048
     Dates: start: 20140520, end: 20140622
  9. IMDUR [Concomitant]
     Active Substance: ISOSORBIDE MONONITRATE
     Dosage: 30 MG, UNK
  10. METOPROLOL [Concomitant]
     Active Substance: METOPROLOL
  11. FURIX [Concomitant]
     Active Substance: FUROSEMIDE
     Dosage: 40 MG, UNK
  12. PERFALGAN [Concomitant]
     Active Substance: ACETAMINOPHEN
     Dosage: 10 MG/ML SOLUTION, AS NEEDED
  13. CEFOTAXIME [Concomitant]
     Active Substance: CEFOTAXIME\CEFOTAXIME SODIUM
     Indication: INFECTION
  14. ALFUZOSIN [Concomitant]
     Active Substance: ALFUZOSIN
  15. GLYCERYL TRINITRATE [Concomitant]
     Active Substance: NITROGLYCERIN
     Dosage: 0.4 MG, SPRAY
     Route: 060
  16. PANODIL [Concomitant]
     Active Substance: ACETAMINOPHEN
     Dosage: UNK, AS NEEDED

REACTIONS (7)
  - Cough [Unknown]
  - Hepatic function abnormal [Recovered/Resolved]
  - Nausea [Unknown]
  - General physical health deterioration [Unknown]
  - Dyspnoea [Unknown]
  - Pyrexia [Unknown]
  - Vomiting [Unknown]

NARRATIVE: CASE EVENT DATE: 20140619
